FAERS Safety Report 7952762-4 (Version None)
Quarter: 2011Q4

REPORT INFORMATION
  Report Type: 
  Country: None (occurrence: None)
  Receive Date: 20111201
  Receipt Date: 20111122
  Transmission Date: 20120403
  Serious: Yes (Hospitalization, Other)
  Sender: FDA-Public Use
  Company Number: US-BAYER-2011-080013

PATIENT
  Age: 35 Year
  Sex: Female

DRUGS (2)
  1. MIRENA [Suspect]
     Dosage: 20 MCG/24HR, CONT
     Route: 015
     Dates: start: 20060911, end: 20110819
  2. MIRENA [Suspect]
     Dosage: 20 MCG/24HR, CONT
     Route: 015
     Dates: start: 20061123, end: 20110819

REACTIONS (6)
  - GASTRIC DISORDER [None]
  - PAIN [None]
  - ABDOMINAL PAIN [None]
  - ULCER [None]
  - FEELING ABNORMAL [None]
  - DEVICE DISLOCATION [None]
